FAERS Safety Report 4604701-1 (Version None)
Quarter: 2005Q1

REPORT INFORMATION
  Report Type: 
  Country: None (occurrence: None)
  Receive Date: 20050224
  Receipt Date: 20041130
  Transmission Date: 20050727
  Serious: No
  Sender: FDA-Public Use
  Company Number: SU-2004-002930

PATIENT
  Age: 55 Year
  Sex: Female

DRUGS (1)
  1. BENICAR [Suspect]
     Indication: HYPERTENSION
     Dosage: 20 MG QD PO
     Route: 048
     Dates: start: 20020401

REACTIONS (3)
  - ALOPECIA [None]
  - HAIR TEXTURE ABNORMAL [None]
  - HYPOTRICHOSIS [None]
